FAERS Safety Report 8107897-2 (Version None)
Quarter: 2012Q1

REPORT INFORMATION
  Report Type: 
  Country: None (occurrence: None)
  Receive Date: 20120202
  Receipt Date: 20120127
  Transmission Date: 20120608
  Serious: Yes (Hospitalization)
  Sender: FDA-Public Use
  Company Number: DE-ROCHE-765387

PATIENT
  Sex: Male

DRUGS (19)
  1. PREDNISONE TAB [Suspect]
     Indication: HODGKIN'S DISEASE
     Dosage: LAST DOSE PRIOR TO SAE: 09 MARCH 2011.TEMPORARILY INTERRUPTED.
     Route: 065
  2. ACYCLOVIR [Concomitant]
     Dosage: DRUG: ACIC 1200 MG; DOSE: 1 DF/D
  3. VINCRISTINE [Suspect]
     Dosage: DATE OF LAST DOSE PRIOR TO SAE: 16 MARCH 2011
     Route: 065
  4. COTRIM DS [Concomitant]
     Dosage: DRUG: COTRIM FORTE 960 MG; DOSE: 1 DF/2 DAYS
  5. FILGRASTIM [Suspect]
     Indication: PRODUCT USED FOR UNKNOWN INDICATION
     Dosage: DRUG: NEUPOGEN 30 MILLION UNIT; TDD: 1DF/D
     Route: 065
     Dates: start: 20110303, end: 20110309
  6. VINCRISTINE [Suspect]
     Indication: HODGKIN'S DISEASE
     Dosage: LAST DOSE PRIOR TO SAE: 03 MARCH 2011. TEMPORARILY INTERRUPTED.
     Route: 065
  7. MABTHERA [Suspect]
     Indication: HODGKIN'S DISEASE
     Dosage: FORM: INFUSION LAST DOSE PRIOR TO SAE WAS ON 16 MARCH 2011
     Route: 042
  8. DOXORUBICIN HYDROCHLORIDE [Suspect]
     Dosage: DATE OF LAST DOSE PRIOR TO SAE: 16 MARCH 2011
     Route: 042
  9. CYCLOPHOSPHAMIDE [Suspect]
     Indication: HODGKIN'S DISEASE
     Dosage: LAST DOSE PRIOR TO SAE: 24 FEBRUARY 2011. TEMPORARILY INTERRUPTED.
     Route: 065
  10. CYCLOPHOSPHAMIDE [Suspect]
     Dosage: DATE OF LAST DOSE PRIOR TO ASE: 16 MARCH 2011
     Route: 065
  11. ETOPOSIDE [Suspect]
     Indication: HODGKIN'S DISEASE
     Dosage: DRUG: ETOPOSIT; LAST DOSE PRIOR TO SAE: 26 FEBRUARY 2011. TEMPORARILY INTERRUPTED.
     Route: 065
  12. BLEOMYCIN SULFATE [Suspect]
     Indication: HODGKIN'S DISEASE
     Dosage: FORM: INFUSION; LAST DOSE PRIOR TO SAE: 03 MARCH 2011. TEMPORARILY INTERRUPTED.
     Route: 042
  13. DOXORUBICIN HYDROCHLORIDE [Suspect]
     Indication: HODGKIN'S DISEASE
     Dosage: DRUG: ADRIAMYCIN, FORM: INFUSION; LAST DOSE PRIOR TO SAE: 24 FEBRUARY 2011. TEMPORARILY INTERRUPTED.
     Route: 042
  14. PROCARBAZINE HYDROCHLORIDE [Suspect]
     Dosage: DATE OF LAST DOSE PRIOR TO SAE: 22 MARCH 2011
     Route: 042
  15. PANTOPRAZOLE [Concomitant]
     Dosage: DRUG: PANTOZOL 20 MG; DOSE: 1 DF/D
     Dates: start: 20110303, end: 20110309
  16. CIPROFLOXACIN [Concomitant]
     Dosage: DRUG: CIPROFLOXACIN 100 MG; DOSE: 1 DF/D
     Dates: start: 20110303, end: 20110309
  17. BLEOMYCIN SULFATE [Suspect]
     Dosage: DATE OF LAST DOSE PIROR TO SAE: 23 MARCH 2011
     Route: 042
  18. PROCARBAZINE HYDROCHLORIDE [Suspect]
     Indication: HODGKIN'S DISEASE
     Dosage: LAST DOSE PRIOR TO SAE: 02 MARCH 2011. TEMPORARILY INTERRUPTED.
     Route: 042
  19. PREDNISONE TAB [Suspect]
     Dosage: DATE OF LAST DOSE PRIOR TO SAE: 29 MARCH 2011
     Route: 065

REACTIONS (7)
  - C-REACTIVE PROTEIN INCREASED [None]
  - ARTHRALGIA [None]
  - SEPSIS [None]
  - C-REACTIVE PROTEIN DECREASED [None]
  - BONE PAIN [None]
  - DEVICE RELATED INFECTION [None]
  - PYREXIA [None]
